FAERS Safety Report 23470948 (Version 1)
Quarter: 2024Q1

REPORT INFORMATION
  Report Type: Spontaneous
  Country: US (occurrence: None)
  Receive Date: 20240202
  Receipt Date: 20240202
  Transmission Date: 20240410
  Serious: Yes (Other)
  Sender: FDA-Public Use
  Company Number: None

PATIENT
  Age: 66 Year
  Sex: Male
  Weight: 104.4 kg

DRUGS (10)
  1. ACTEMRA ACTPEN [Suspect]
     Active Substance: TOCILIZUMAB
     Indication: Giant cell arteritis
     Dosage: FREQUENCY : WEEKLY;?
     Route: 058
     Dates: start: 20231228
  2. PREDNISONE [Concomitant]
     Active Substance: PREDNISONE
     Dates: start: 20231214
  3. SULFAMETHOXAZOLE\TRIMETHOPRIM [Concomitant]
     Active Substance: SULFAMETHOXAZOLE\TRIMETHOPRIM
     Dates: start: 20231214
  4. LISINOPRIL [Concomitant]
     Active Substance: LISINOPRIL
     Dates: start: 20231218
  5. metoprolol succinate ER 100 mg [Concomitant]
     Dates: start: 20231218
  6. METHOCARBAMOL [Concomitant]
     Active Substance: METHOCARBAMOL
     Dates: start: 20230924
  7. OMEPRAZOLE [Concomitant]
     Active Substance: OMEPRAZOLE
     Dates: start: 20231215
  8. SIMVASTATIN [Concomitant]
     Active Substance: SIMVASTATIN
     Dates: start: 20231211
  9. vitamin D3 2000 units [Concomitant]
     Dates: start: 20231214
  10. ASPIRIN [Concomitant]
     Active Substance: ASPIRIN
     Dates: start: 20230924

REACTIONS (5)
  - Hyperhidrosis [None]
  - Fatigue [None]
  - Pain in extremity [None]
  - Rash [None]
  - Skin discolouration [None]

NARRATIVE: CASE EVENT DATE: 20231228
